FAERS Safety Report 5742103-5 (Version None)
Quarter: 2008Q2

REPORT INFORMATION
  Report Type: 
  Country: None (occurrence: None)
  Receive Date: 20080514
  Receipt Date: 20080514
  Transmission Date: 20081010
  Serious: Yes (Other)
  Sender: FDA-Public Use
  Company Number: None

PATIENT
  Age: 44 Year
  Sex: Female
  Weight: 54.4316 kg

DRUGS (1)
  1. CREST PRO-HEALTH NIGHT ORAL RINSE   IL - 33.8  FL OZ-  PROCTOR + GAMBL [Suspect]
     Indication: DENTAL DISORDER PROPHYLAXIS
     Dosage: APPROX.  2 TEASPOONS  ONCE PER DAY  PO
     Route: 048
     Dates: start: 20080415, end: 20080511

REACTIONS (1)
  - TOOTH DISCOLOURATION [None]
